FAERS Safety Report 9522859 (Version 1)
Quarter: 2013Q3

REPORT INFORMATION
  Report Type: Spontaneous
  Country: DE (occurrence: DE)
  Receive Date: 20130913
  Receipt Date: 20130913
  Transmission Date: 20140515
  Serious: Yes (Hospitalization)
  Sender: FDA-Public Use
  Company Number: DE-TEVA-430503GER

PATIENT
  Age: 16 Year
  Sex: Female
  Weight: 63 kg

DRUGS (1)
  1. METOCLOPRAMID [Suspect]
     Indication: NAUSEA
     Dosage: 90 GTT DAILY;
     Route: 048
     Dates: start: 20121127, end: 20121128

REACTIONS (5)
  - Hypoaesthesia [Recovered/Resolved]
  - Muscle spasms [Recovered/Resolved]
  - Muscle spasms [Recovered/Resolved]
  - Oropharyngeal spasm [Recovered/Resolved]
  - Torticollis [Recovered/Resolved]
